FAERS Safety Report 5813764-7 (Version None)
Quarter: 2008Q3

REPORT INFORMATION
  Report Type: 
  Country: None (occurrence: None)
  Receive Date: 20080717
  Receipt Date: 20080709
  Transmission Date: 20090109
  Serious: Yes (Other)
  Sender: FDA-Public Use
  Company Number: PHHY2008KR13601

PATIENT
  Sex: Male

DRUGS (1)
  1. EXJADE [Suspect]
     Indication: IRON OVERLOAD
     Dosage: 750MG/ DAY
     Route: 048
     Dates: start: 20080628

REACTIONS (3)
  - BONE MARROW TRANSPLANT [None]
  - PARAESTHESIA ORAL [None]
  - RASH [None]
